FAERS Safety Report 9636211 (Version 1)
Quarter: 2013Q4

REPORT INFORMATION
  Report Type: Spontaneous
  Country: US (occurrence: US)
  Receive Date: 20131021
  Receipt Date: 20131021
  Transmission Date: 20140711
  Serious: No
  Sender: FDA-Public Use
  Company Number: US-MYLANLABS-2012S1024023

PATIENT
  Age: 60 Year
  Sex: Female
  Weight: 83.92 kg

DRUGS (1)
  1. BISOPROLOL FUMARATE AND HYDROCHLOROTHIAZIDE TABLETS [Suspect]
     Indication: HYPERTENSION
     Route: 048
     Dates: start: 20121018

REACTIONS (2)
  - Hyperhidrosis [Not Recovered/Not Resolved]
  - Flushing [Not Recovered/Not Resolved]
